FAERS Safety Report 9234100 (Version 5)
Quarter: 2013Q4

REPORT INFORMATION
  Report Type: Report from Study
  Country: DE (occurrence: DE)
  Receive Date: 20130416
  Receipt Date: 20131115
  Transmission Date: 20140711
  Serious: Yes (Life-Threatening, Hospitalization)
  Sender: FDA-Public Use
  Company Number: DE-ROCHE-1213158

PATIENT
  Age: 71 Year
  Sex: Female
  Weight: 69 kg

DRUGS (14)
  1. TOCILIZUMAB [Suspect]
     Indication: RHEUMATOID ARTHRITIS
     Dosage: LAST DOSE PRIOR TO THE EVENT 13 MAR 2013.
     Route: 042
     Dates: start: 20121023
  2. TOCILIZUMAB [Suspect]
     Route: 042
     Dates: start: 20130313
  3. TOCILIZUMAB [Suspect]
     Route: 042
     Dates: start: 20130218
  4. TOCILIZUMAB [Suspect]
     Route: 042
     Dates: start: 20130115
  5. TOCILIZUMAB [Suspect]
     Route: 042
     Dates: start: 20121218
  6. ETORICOXIB [Concomitant]
     Route: 048
     Dates: start: 20120118
  7. FOLIC ACID [Concomitant]
     Route: 048
     Dates: start: 20120604
  8. METHOTREXATE [Concomitant]
     Route: 048
     Dates: start: 20120703
  9. PREDNISOLON [Concomitant]
     Route: 065
     Dates: start: 20120723
  10. ASS100 [Concomitant]
     Route: 065
     Dates: start: 20130411
  11. TICAGRELOR [Concomitant]
     Route: 065
     Dates: start: 20130411
  12. SIMVASTATIN [Concomitant]
     Route: 065
     Dates: start: 20130411
  13. CANDESARTAN CILEXETIL [Concomitant]
     Route: 065
     Dates: start: 20130411, end: 20130515
  14. CANDESARTAN CILEXETIL [Concomitant]
     Route: 065
     Dates: start: 20130516

REACTIONS (1)
  - Acute myocardial infarction [Recovered/Resolved]
